FAERS Safety Report 9692702 (Version 2)
Quarter: 2013Q4

REPORT INFORMATION
  Report Type: Report from Study
  Country: CA (occurrence: CA)
  Receive Date: 20131118
  Receipt Date: 20131120
  Transmission Date: 20140711
  Serious: Yes (Death)
  Sender: FDA-Public Use
  Company Number: PHHY2013CA130928

PATIENT
  Sex: Female

DRUGS (3)
  1. CLOZARIL [Suspect]
     Indication: SCHIZOPHRENIA
     Dosage: 300 MG
     Route: 048
     Dates: start: 20040216
  2. RISPERDAL [Concomitant]
     Dosage: UNK
  3. KEMADRIN [Concomitant]
     Dosage: UNK

REACTIONS (1)
  - Neoplasm malignant [Fatal]
